FAERS Safety Report 6162628-0 (Version None)
Quarter: 2009Q2

REPORT INFORMATION
  Report Type: 
  Country: None (occurrence: None)
  Receive Date: 20090421
  Receipt Date: 20090411
  Transmission Date: 20091009
  Serious: Yes (Other)
  Sender: FDA-Public Use
  Company Number: US-AMGEN-TCS342604

PATIENT
  Sex: Female

DRUGS (2)
  1. ENBREL [Suspect]
     Indication: RHEUMATOID ARTHRITIS
     Route: 058
     Dates: start: 20021001
  2. NEUPOGEN [Suspect]
     Indication: NEUTROPENIA
     Dates: start: 20090101

REACTIONS (4)
  - FEELING ABNORMAL [None]
  - FELTY'S SYNDROME [None]
  - INJECTION SITE IRRITATION [None]
  - WHITE BLOOD CELL COUNT DECREASED [None]
